FAERS Safety Report 9296061 (Version 3)
Quarter: 2013Q3

REPORT INFORMATION
  Report Type: Report from Study
  Country: JP (occurrence: JP)
  Receive Date: 20130517
  Receipt Date: 20130923
  Transmission Date: 20140515
  Serious: Yes (Death, Other)
  Sender: FDA-Public Use
  Company Number: JP-ROCHE-1225739

PATIENT
  Age: 69 Year
  Sex: Male
  Weight: 59 kg

DRUGS (11)
  1. TOCILIZUMAB [Suspect]
     Indication: RHEUMATOID ARTHRITIS
     Route: 041
     Dates: start: 20120619, end: 20120814
  2. AZULFIDINE-EN [Concomitant]
     Indication: RHEUMATOID ARTHRITIS
     Route: 048
  3. PREDNISOLONE [Concomitant]
     Indication: RHEUMATOID ARTHRITIS
     Route: 048
  4. MAINTATE [Concomitant]
     Dosage: DOSAGE IS UNCERTAIN.
     Route: 048
  5. DIART [Concomitant]
     Dosage: DOSAGE IS UNCERTAIN.
     Route: 048
  6. TANATRIL [Concomitant]
     Dosage: DOSAGE IS UNCERTAIN.
     Route: 048
  7. LASIX [Concomitant]
     Dosage: DOSAGE IS UNCERTAIN.
     Route: 048
  8. TAKEPRON [Concomitant]
     Dosage: DOSAGE IS UNCERTAIN.
     Route: 048
  9. WARFARIN [Concomitant]
     Dosage: DOSAGE IS UNCERTAIN.
     Route: 048
  10. BONALON [Concomitant]
     Dosage: DOSAGE IS UNCERTAIN.
     Route: 048
  11. NOVORAPID [Concomitant]
     Dosage: DOSAGE IS UNCERTAIN.
     Route: 058

REACTIONS (2)
  - Hepatic function abnormal [Not Recovered/Not Resolved]
  - Shock haemorrhagic [Fatal]
